FAERS Safety Report 8783061 (Version 4)
Quarter: 2014Q1

REPORT INFORMATION
  Report Type: Spontaneous
  Country: US (occurrence: US)
  Receive Date: 20120913
  Receipt Date: 20140102
  Transmission Date: 20141002
  Serious: Yes (Other)
  Sender: FDA-Public Use
  Company Number: US-ASTRAZENECA-2012SE70437

PATIENT
  Age: 38 Year
  Sex: Female
  Weight: 68 kg

DRUGS (11)
  1. SEROQUEL [Suspect]
     Indication: POST-TRAUMATIC STRESS DISORDER
     Route: 048
  2. SEROQUEL [Suspect]
     Indication: POST-TRAUMATIC STRESS DISORDER
     Route: 048
     Dates: start: 201208
  3. SEROQUEL [Suspect]
     Indication: POST-TRAUMATIC STRESS DISORDER
     Dosage: GENERIC
     Route: 048
  4. SEROQUEL [Suspect]
     Indication: POST-TRAUMATIC STRESS DISORDER
     Dosage: DAW
     Route: 048
     Dates: start: 2001, end: 2012
  5. SEROQUEL [Suspect]
     Indication: POST-TRAUMATIC STRESS DISORDER
     Route: 048
     Dates: start: 2001, end: 2012
  6. SEROQUEL [Suspect]
     Indication: POST-TRAUMATIC STRESS DISORDER
     Dosage: GENERIC
     Route: 048
     Dates: start: 2012
  7. SEROQUEL [Suspect]
     Indication: POST-TRAUMATIC STRESS DISORDER
     Route: 048
     Dates: start: 2012
  8. KLONOPIN [Concomitant]
     Indication: AFFECTIVE DISORDER
     Route: 048
  9. BUSPIRONE [Concomitant]
     Dates: start: 2001
  10. NEFAZADONE [Concomitant]
     Dates: start: 2001
  11. MICROGESTIN [Concomitant]

REACTIONS (13)
  - Adverse event [Unknown]
  - Panic attack [Not Recovered/Not Resolved]
  - Depersonalisation [Not Recovered/Not Resolved]
  - Feeling abnormal [Unknown]
  - Mood altered [Unknown]
  - Dissociation [Unknown]
  - Disease recurrence [Unknown]
  - Panic disorder [Unknown]
  - Fear [Unknown]
  - Feeling abnormal [Unknown]
  - Off label use [Unknown]
  - Drug ineffective [Not Recovered/Not Resolved]
  - Intentional drug misuse [Unknown]
